FAERS Safety Report 12936228 (Version 1)
Quarter: 2016Q4

REPORT INFORMATION
  Report Type: Spontaneous
  Country: US (occurrence: US)
  Receive Date: 20161112
  Receipt Date: 20161112
  Transmission Date: 20170207
  Serious: Yes (Hospitalization)
  Sender: FDA-Public Use
  Company Number: None

PATIENT
  Age: 2 Year
  Sex: Male
  Weight: 12.4 kg

DRUGS (7)
  1. METHOTREXATE. [Suspect]
     Active Substance: METHOTREXATE
     Dates: end: 20160930
  2. DEXAMETHASONE. [Suspect]
     Active Substance: DEXAMETHASONE
     Dates: end: 20161005
  3. ONCASPAR [Suspect]
     Active Substance: PEGASPARGASE
     Dates: end: 20161005
  4. CYCLOPHOSPHAMIDE. [Suspect]
     Active Substance: CYCLOPHOSPHAMIDE
     Dates: end: 20161003
  5. VINCRISTINE SULFATE. [Suspect]
     Active Substance: VINCRISTINE SULFATE
     Dates: end: 20161005
  6. CYTARABINE. [Suspect]
     Active Substance: CYTARABINE
     Dates: end: 20161005
  7. HYDROCORTISONE. [Suspect]
     Active Substance: HYDROCORTISONE
     Dates: end: 20160930

REACTIONS (10)
  - Heart rate increased [None]
  - Hypoalbuminaemia [None]
  - Oedema [None]
  - Neutropenia [None]
  - Klebsiella test positive [None]
  - Mucosal inflammation [None]
  - Chills [None]
  - Pyrexia [None]
  - Blood culture positive [None]
  - Blood pressure decreased [None]

NARRATIVE: CASE EVENT DATE: 20161010
